FAERS Safety Report 6316536-2 (Version None)
Quarter: 2009Q3

REPORT INFORMATION
  Report Type: 
  Country: None (occurrence: None)
  Receive Date: 20090820
  Receipt Date: 20090813
  Transmission Date: 20100115
  Serious: Yes (Hospitalization)
  Sender: FDA-Public Use
  Company Number: FR-JNJFOC-20090804459

PATIENT
  Age: 36 Year
  Sex: Female

DRUGS (5)
  1. RISPERDAL [Suspect]
     Indication: PSYCHOTIC DISORDER
     Route: 048
  2. LARGACTIL [Suspect]
     Indication: DRUG USE FOR UNKNOWN INDICATION
     Route: 048
  3. ATARAX [Concomitant]
     Route: 048
  4. URSOLVAN [Concomitant]
     Route: 048
  5. ACETAMINOPHEN [Concomitant]
     Route: 048

REACTIONS (3)
  - CYTOLYTIC HEPATITIS [None]
  - DRUG EXPOSURE DURING PREGNANCY [None]
  - PREGNANCY [None]
